FAERS Safety Report 15394482 (Version 1)
Quarter: 2018Q3

REPORT INFORMATION
  Report Type: Report from Study
  Country: US (occurrence: US)
  Receive Date: 20180918
  Receipt Date: 20180918
  Transmission Date: 20181010
  Serious: Yes (Other)
  Sender: FDA-Public Use
  Company Number: US-BEH-2018094838

PATIENT
  Age: 48 Year
  Sex: Female

DRUGS (1)
  1. HIZENTRA [Suspect]
     Active Substance: HUMAN IMMUNOGLOBULIN G
     Indication: PRIMARY IMMUNODEFICIENCY SYNDROME
     Dosage: UNK UNK, WEEKLY
     Route: 042

REACTIONS (5)
  - Cholecystectomy [Unknown]
  - Craniotomy [Unknown]
  - Fibromyalgia [Unknown]
  - Influenza like illness [Unknown]
  - Impaired work ability [Unknown]
